FAERS Safety Report 5673329-7 (Version None)
Quarter: 2008Q2

REPORT INFORMATION
  Report Type: 
  Country: None (occurrence: None)
  Receive Date: 20080219
  Receipt Date: 20071105
  Transmission Date: 20081010
  Serious: No
  Sender: FDA-Public Use
  Company Number: TPA2007A02284

PATIENT
  Age: 57 Year
  Sex: Female

DRUGS (4)
  1. ROZEREM [Suspect]
     Dosage: 8 MG QHS, PER ORAL
     Route: 048
  2. UNKNOWN STATIN (ALL OTHER THERAPEUTIC PRODUCTS) [Concomitant]
  3. CLONAZEPAM [Concomitant]
  4. SEROQUEL [Concomitant]

REACTIONS (4)
  - DIZZINESS [None]
  - DRUG INEFFECTIVE [None]
  - MYALGIA [None]
  - NAUSEA [None]
